FAERS Safety Report 20674840 (Version 1)
Quarter: 2022Q2

REPORT INFORMATION
  Report Type: Report from Study
  Country: US (occurrence: None)
  Receive Date: 20220405
  Receipt Date: 20220405
  Transmission Date: 20220721
  Serious: Yes (Other)
  Sender: FDA-Public Use
  Company Number: US-ROCHE-3061521

PATIENT
  Age: 35 Year
  Sex: Female

DRUGS (1)
  1. ALECTINIB [Suspect]
     Active Substance: ALECTINIB
     Indication: Non-small cell lung cancer
     Route: 065

REACTIONS (3)
  - Acute respiratory distress syndrome [Unknown]
  - Dyspnoea [Unknown]
  - Abdominal pain [Unknown]

NARRATIVE: CASE EVENT DATE: 20210224
